FAERS Safety Report 24575665 (Version 1)
Quarter: 2024Q4

REPORT INFORMATION
  Report Type: Spontaneous
  Country: US (occurrence: US)
  Receive Date: 20241104
  Receipt Date: 20241104
  Transmission Date: 20250115
  Serious: Yes (Hospitalization, Other)
  Sender: RECORDATI
  Company Number: US-RECORDATI RARE DISEASES-2024008329

PATIENT

DRUGS (1)
  1. PANHEMATIN [Suspect]
     Active Substance: HEMIN
     Indication: Product used for unknown indication
     Dosage: AS DIRECTED
     Route: 042
     Dates: start: 2022

REACTIONS (5)
  - Hospitalisation [Unknown]
  - Disease recurrence [Recovered/Resolved]
  - Abdominal pain upper [Unknown]
  - Feeling hot [Recovered/Resolved]
  - Injection site pain [Recovered/Resolved]

NARRATIVE: CASE EVENT DATE: 20220101
